FAERS Safety Report 23832019 (Version 1)
Quarter: 2024Q2

REPORT INFORMATION
  Report Type: Report from Study
  Country: US (occurrence: None)
  Receive Date: 20240508
  Receipt Date: 20240508
  Transmission Date: 20240715
  Serious: Yes (Other)
  Sender: FDA-Public Use
  Company Number: 2024A103912

PATIENT
  Sex: Female

DRUGS (1)
  1. CALQUENCE [Suspect]
     Active Substance: ACALABRUTINIB
     Indication: Chronic lymphocytic leukaemia
     Route: 048

REACTIONS (6)
  - Road traffic accident [Unknown]
  - Pain [Unknown]
  - Hypoaesthesia [Unknown]
  - Muscle spasms [Unknown]
  - Arthralgia [Unknown]
  - Arterial disorder [Unknown]
